FAERS Safety Report 4869598-3 (Version None)
Quarter: 2005Q4

REPORT INFORMATION
  Report Type: 
  Country: None (occurrence: None)
  Receive Date: 20051227
  Receipt Date: 20051212
  Transmission Date: 20060501
  Serious: Yes (Other)
  Sender: FDA-Public Use
  Company Number: 2005-135930-NL

PATIENT
  Age: 34 Year
  Sex: Male

DRUGS (4)
  1. MIRTAZAPINE [Suspect]
     Indication: AGORAPHOBIA
     Dosage: ORAL
     Route: 048
     Dates: start: 20050223, end: 20050228
  2. MIRTAZAPINE [Suspect]
     Indication: POST-TRAUMATIC STRESS DISORDER
     Dosage: ORAL
     Route: 048
     Dates: start: 20050223, end: 20050228
  3. AMFETAMINE [Concomitant]
  4. DIAZEPAM [Concomitant]

REACTIONS (2)
  - AGGRESSION [None]
  - CONDITION AGGRAVATED [None]
